FAERS Safety Report 6348707-3 (Version None)
Quarter: 2009Q3

REPORT INFORMATION
  Report Type: 
  Country: None (occurrence: None)
  Receive Date: 20090911
  Receipt Date: 20090904
  Transmission Date: 20100115
  Serious: Yes (Hospitalization)
  Sender: FDA-Public Use
  Company Number: PHHO2008AU00491

PATIENT
  Sex: Female
  Weight: 44.4 kg

DRUGS (4)
  1. RAD 666 RAD+TAB [Suspect]
     Indication: NON-SMALL CELL LUNG CANCER
     Dosage: 30 MG WEEKLY
     Route: 048
     Dates: start: 20071116, end: 20071227
  2. CARBOPLATIN [Concomitant]
     Indication: NON-SMALL CELL LUNG CANCER
     Dosage: 465 MG
     Route: 042
     Dates: start: 20071115
  3. PACLITAXEL [Concomitant]
     Indication: NON-SMALL CELL LUNG CANCER
     Dosage: 282 MG
     Route: 042
  4. COLOXYL WITH SENNA [Concomitant]

REACTIONS (9)
  - ABDOMINAL DISTENSION [None]
  - ABDOMINAL PAIN [None]
  - DEHYDRATION [None]
  - DIARRHOEA [None]
  - FEBRILE NEUTROPENIA [None]
  - HYPOTENSION [None]
  - SMALL INTESTINAL OBSTRUCTION [None]
  - TACHYCARDIA [None]
  - VOMITING [None]
